FAERS Safety Report 5425461-0 (Version None)
Quarter: 2007Q3

REPORT INFORMATION
  Report Type: 
  Country: None (occurrence: None)
  Receive Date: 20070731
  Receipt Date: 20070406
  Transmission Date: 20080115
  Serious: No
  Sender: FDA-Public Use
  Company Number: US200704001764

PATIENT
  Age: 57 Year
  Sex: Female
  Weight: 101.6 kg

DRUGS (5)
  1. BYETTA [Suspect]
     Indication: TYPE 2 DIABETES MELLITUS
     Dosage: 5UG, 2/D, SUBCUTANEOUS
     Route: 058
     Dates: start: 20070310
  2. EXENATIDE 5MCG PEN, DISPOSABLE DEVICE (EXENATIDE PEN (5MCG)) PEN, DISO [Concomitant]
  3. EXENATIDE 5MCG PEN, DISPOSABLE DEVICE (EXENATIDE PEN (5MCG)) PEN, DIPO [Concomitant]
  4. AVANDIA [Concomitant]
  5. METFORMIN HCL [Concomitant]

REACTIONS (2)
  - FUNGAL INFECTION [None]
  - INJECTION SITE URTICARIA [None]
